FAERS Safety Report 8026098-X (Version None)
Quarter: 2012Q1

REPORT INFORMATION
  Report Type: 
  Country: None (occurrence: None)
  Receive Date: 20120105
  Receipt Date: 20110622
  Transmission Date: 20120608
  Serious: No
  Sender: FDA-Public Use
  Company Number: US-ABBOTT-11P-163-0734563-00

PATIENT
  Sex: Female

DRUGS (3)
  1. SYNTHROID [Suspect]
     Indication: AUTOIMMUNE THYROIDITIS
     Dosage: HALF OF 88MCG PLUS HALF OF 100MCG DAILY
     Dates: start: 20110501, end: 20110601
  2. SYNTHROID [Suspect]
     Dosage: 88MCG FOR 5 DAYS, 100MCG FOR 2 DAYS/WEEK
     Dates: end: 20110501
  3. TIROSINT [Suspect]
     Indication: AUTOIMMUNE THYROIDITIS
     Dosage: 88MCG FOR 5 DAYS, 100MCG FOR 2 DAYS/WEEK
     Dates: start: 20110607

REACTIONS (8)
  - AGITATION [None]
  - MALAISE [None]
  - ANXIETY [None]
  - FEELING ABNORMAL [None]
  - HEADACHE [None]
  - BLOOD THYROID STIMULATING HORMONE DECREASED [None]
  - PALPITATIONS [None]
  - PARAESTHESIA [None]
